FAERS Safety Report 6925696-1 (Version None)
Quarter: 2010Q3

REPORT INFORMATION
  Report Type: 
  Country: None (occurrence: None)
  Receive Date: 20100816
  Receipt Date: 20100811
  Transmission Date: 20110219
  Serious: Yes (Hospitalization)
  Sender: FDA-Public Use
  Company Number: A0875199A

PATIENT
  Age: 58 Year
  Sex: Male

DRUGS (7)
  1. LOVAZA [Suspect]
     Indication: BLOOD CHOLESTEROL
     Route: 048
  2. METOPROLOL TARTRATE [Concomitant]
  3. GLIMEPIRIDE [Concomitant]
  4. ACTOS [Concomitant]
  5. LEVOXYL [Concomitant]
  6. LISINOPRIL [Concomitant]
  7. ASPIRIN [Concomitant]

REACTIONS (11)
  - ARRHYTHMIA [None]
  - ASTHENIA [None]
  - BACK PAIN [None]
  - FAECAL INCONTINENCE [None]
  - HEADACHE [None]
  - INCONTINENCE [None]
  - INFLUENZA LIKE ILLNESS [None]
  - PNEUMONIA [None]
  - PNEUMONIA LEGIONELLA [None]
  - PYREXIA [None]
  - WEIGHT DECREASED [None]
